FAERS Safety Report 23146776 (Version 1)
Quarter: 2023Q4

REPORT INFORMATION
  Report Type: Report from Study
  Country: BR (occurrence: BR)
  Receive Date: 20231105
  Receipt Date: 20231105
  Transmission Date: 20240110
  Serious: Yes (Hospitalization)
  Sender: FDA-Public Use
  Company Number: BR-CELLTRION INC.-2023BR021232

PATIENT

DRUGS (4)
  1. INFLIXIMAB [Suspect]
     Active Substance: INFLIXIMAB
     Indication: Rheumatoid arthritis
     Dosage: 2 AMPOULES EVERY 2 MONTHS
     Route: 042
     Dates: start: 20230413
  2. INFLIXIMAB [Suspect]
     Active Substance: INFLIXIMAB
     Dosage: 2 AMPOULES EVERY 2 MONTHS
     Route: 042
     Dates: start: 20230802
  3. METHOTREXATE [Concomitant]
     Active Substance: METHOTREXATE
     Indication: Rheumatoid arthritis
     Dosage: 6 TABLETS ONCE A WEEK
     Route: 048
     Dates: start: 2018
  4. FOLIC ACID [Concomitant]
     Active Substance: FOLIC ACID
     Indication: Adverse reaction
     Dosage: 1 TABLET ONCE A WEEK
     Route: 048

REACTIONS (3)
  - Female sterilisation [Recovering/Resolving]
  - Pain [Recovered/Resolved]
  - Intentional dose omission [Unknown]

NARRATIVE: CASE EVENT DATE: 20231004
